FAERS Safety Report 11836408 (Version 1)
Quarter: 2015Q4

REPORT INFORMATION
  Report Type: Spontaneous
  Country: US (occurrence: None)
  Receive Date: 20151214
  Receipt Date: 20151214
  Transmission Date: 20160305
  Serious: Yes (Life-Threatening, Hospitalization)
  Sender: FDA-Public Use
  Company Number: None

PATIENT
  Age: 55 Year
  Sex: Male
  Weight: 114.76 kg

DRUGS (8)
  1. ELAVIL [Concomitant]
     Active Substance: AMITRIPTYLINE HYDROCHLORIDE
  2. GABAPENTIN. [Concomitant]
     Active Substance: GABAPENTIN
  3. BRINTELLAX [Concomitant]
  4. ENALAPRIL [Concomitant]
     Active Substance: ENALAPRIL
  5. HUMALOG MIX [Concomitant]
     Active Substance: INSULIN LISPRO
  6. PRAVACHOL [Concomitant]
     Active Substance: PRAVASTATIN SODIUM
  7. COREG [Concomitant]
     Active Substance: CARVEDILOL
  8. INVOKANA [Suspect]
     Active Substance: CANAGLIFLOZIN
     Indication: DIABETES MELLITUS
     Dosage: ONE PILL A DAY
     Route: 048

REACTIONS (4)
  - Unresponsive to stimuli [None]
  - Diabetic ketoacidosis [None]
  - Hypotension [None]
  - Respiratory tract infection [None]

NARRATIVE: CASE EVENT DATE: 20151212
